FAERS Safety Report 11799560 (Version 1)
Quarter: 2015Q4

REPORT INFORMATION
  Report Type: Spontaneous
  Country: FR (occurrence: FR)
  Receive Date: 20151203
  Receipt Date: 20151203
  Transmission Date: 20160305
  Serious: Yes (Hospitalization)
  Sender: FDA-Public Use
  Company Number: PHHY2015FR156555

PATIENT
  Age: 91 Year
  Sex: Female

DRUGS (11)
  1. TARGOCID [Suspect]
     Active Substance: TEICOPLANIN
     Indication: INFECTION
     Dosage: 800 MG, QD
     Route: 058
     Dates: start: 20151026, end: 20151102
  2. ATENOLOL. [Concomitant]
     Active Substance: ATENOLOL
     Indication: PRODUCT USED FOR UNKNOWN INDICATION
     Route: 065
     Dates: start: 20151026, end: 20151102
  3. BENAZEPRIL HYDROCHLORIDE. [Concomitant]
     Active Substance: BENAZEPRIL HYDROCHLORIDE
     Indication: PRODUCT USED FOR UNKNOWN INDICATION
     Route: 065
     Dates: start: 20151026, end: 20151102
  4. RIMACTAN SANDOZ [Suspect]
     Active Substance: RIFAMPIN
     Dosage: 1200 MG, QD
     Dates: start: 20151113
  5. RAMIPRIL. [Suspect]
     Active Substance: RAMIPRIL
     Indication: HYPERTENSION
     Dosage: 1 DF, QD
     Route: 065
     Dates: start: 20151026, end: 20151106
  6. LOVENOX [Concomitant]
     Active Substance: ENOXAPARIN SODIUM
     Indication: PRODUCT USED FOR UNKNOWN INDICATION
     Dosage: 1 DF, BID
     Route: 058
     Dates: start: 20150906, end: 20151105
  7. RIMACTAN SANDOZ [Suspect]
     Active Substance: RIFAMPIN
     Indication: INFECTION
     Dosage: 2 DF, QD
     Route: 048
     Dates: start: 20151026, end: 20151104
  8. OXYBUTYNINE [Concomitant]
     Active Substance: OXYBUTYNIN CHLORIDE
     Indication: PRODUCT USED FOR UNKNOWN INDICATION
     Route: 065
     Dates: start: 20151026, end: 20151102
  9. LAROXYL [Concomitant]
     Active Substance: AMITRIPTYLINE
     Indication: PRODUCT USED FOR UNKNOWN INDICATION
     Route: 065
     Dates: start: 20151026, end: 20151102
  10. PIPERACILLINE [Concomitant]
     Active Substance: PIPERACILLIN SODIUM
     Indication: PRODUCT USED FOR UNKNOWN INDICATION
     Route: 065
     Dates: start: 20151026, end: 20151102
  11. TARGOCID [Suspect]
     Active Substance: TEICOPLANIN
     Indication: INFECTION

REACTIONS (2)
  - Neutropenia [Recovered/Resolved]
  - Thrombocytopenia [Recovered/Resolved]

NARRATIVE: CASE EVENT DATE: 20151102
